FAERS Safety Report 6302836-9 (Version None)
Quarter: 2009Q3

REPORT INFORMATION
  Report Type: 
  Country: None (occurrence: None)
  Receive Date: 20090810
  Receipt Date: 20090317
  Transmission Date: 20100115
  Serious: No
  Sender: FDA-Public Use
  Company Number: US-BAYER-200913343NA

PATIENT
  Age: 55 Year
  Sex: Male

DRUGS (5)
  1. NEXAVAR [Suspect]
     Indication: RENAL CELL CARCINOMA
     Dosage: TOTAL DAILY DOSE: 800 MG  UNIT DOSE: 200 MG
     Route: 048
     Dates: start: 20090207
  2. SUTENT [Concomitant]
     Dates: start: 20070201, end: 20080901
  3. ATENOLOL [Concomitant]
  4. ATIVAN [Concomitant]
  5. OXYCODONE [Concomitant]
     Indication: MUSCULOSKELETAL CHEST PAIN
     Dosage: USUALLY TAKES 3 TIMES A DAY

REACTIONS (1)
  - RASH MACULAR [None]
